FAERS Safety Report 7394909-7 (Version None)
Quarter: 2011Q2

REPORT INFORMATION
  Report Type: 
  Country: None (occurrence: None)
  Receive Date: 20110405
  Receipt Date: 20110328
  Transmission Date: 20111010
  Serious: Yes (Life-Threatening)
  Sender: FDA-Public Use
  Company Number: B0709496A

PATIENT
  Sex: Male

DRUGS (5)
  1. RIVOTRIL [Concomitant]
     Indication: PARKINSON'S DISEASE
     Route: 065
  2. REQUIP [Suspect]
     Indication: PARKINSON'S DISEASE
     Route: 065
  3. MODOPAR [Concomitant]
     Indication: PARKINSON'S DISEASE
     Route: 065
  4. PARKINANE [Concomitant]
     Indication: PARKINSON'S DISEASE
     Route: 065
  5. APOMORPHINE [Concomitant]
     Indication: PARKINSON'S DISEASE
     Route: 065

REACTIONS (6)
  - HALLUCINATION [None]
  - AGGRESSION [None]
  - MOOD ALTERED [None]
  - SEXUAL ABUSE [None]
  - AGITATION [None]
  - SEXUAL DYSFUNCTION [None]
